FAERS Safety Report 7245560-0 (Version None)
Quarter: 2011Q1

REPORT INFORMATION
  Report Type: 
  Country: None (occurrence: None)
  Receive Date: 20110126
  Receipt Date: 20110119
  Transmission Date: 20110831
  Serious: Yes (Other)
  Sender: FDA-Public Use
  Company Number: GB-PFIZER INC-2011013797

PATIENT
  Age: 58 Year
  Sex: Male
  Weight: 85 kg

DRUGS (3)
  1. NAPROXEN [Concomitant]
     Dosage: UNK
     Route: 048
     Dates: start: 20100101
  2. SIMVASTATIN [Concomitant]
     Dosage: UNK
     Route: 048
     Dates: start: 20100101
  3. LYRICA [Suspect]
     Indication: NEURALGIA
     Dosage: 50 MG, 2X/DAY
     Route: 048
     Dates: start: 20100101

REACTIONS (1)
  - MOUTH HAEMORRHAGE [None]
